FAERS Safety Report 12425455 (Version 1)
Quarter: 2016Q2

REPORT INFORMATION
  Report Type: Spontaneous
  Country: GB (occurrence: GB)
  Receive Date: 20160601
  Receipt Date: 20160601
  Transmission Date: 20160815
  Serious: Yes (Other)
  Sender: FDA-Public Use
  Company Number: GB-WATSON-2016-10852

PATIENT
  Age: 43 Year
  Sex: Female
  Weight: 68.48 kg

DRUGS (2)
  1. CLARITHROMYCIN (UNKNOWN) [Suspect]
     Active Substance: CLARITHROMYCIN
     Indication: POST PROCEDURAL INFECTION
     Dosage: 800 MG, DAILY
     Route: 048
     Dates: start: 20160502, end: 20160510
  2. METRONIDAZOLE. [Concomitant]
     Active Substance: METRONIDAZOLE
     Indication: PRODUCT USED FOR UNKNOWN INDICATION
     Dosage: UNK, UNKNOWN
     Route: 065

REACTIONS (4)
  - Insomnia [Recovering/Resolving]
  - Anxiety [Recovered/Resolved]
  - Diarrhoea [Recovering/Resolving]
  - Myalgia [Recovered/Resolved]

NARRATIVE: CASE EVENT DATE: 20160506
